FAERS Safety Report 7394162-4 (Version None)
Quarter: 2011Q2

REPORT INFORMATION
  Report Type: 
  Country: None (occurrence: None)
  Receive Date: 20110405
  Receipt Date: 20101110
  Transmission Date: 20111010
  Serious: Yes (Other)
  Sender: FDA-Public Use
  Company Number: US-BAYER-201030321NA

PATIENT
  Sex: Female
  Weight: 55.329 kg

DRUGS (8)
  1. ACIPHEX [Concomitant]
     Indication: ABDOMINAL PAIN
     Dosage: UNK
     Route: 048
     Dates: start: 20100101
  2. YAZ [Suspect]
     Indication: CONTRACEPTION
     Dosage: UNK UNK, QD
     Route: 048
     Dates: start: 20080101, end: 20090101
  3. IBUPROFEN [Concomitant]
     Dosage: 200 MG, UNK
     Route: 048
     Dates: start: 20100522
  4. NORTREL [ETHINYLESTRADIOL,NORETHISTERONE] [Concomitant]
     Dosage: UNK
     Dates: start: 20100128
  5. KEFLEX [Concomitant]
     Dosage: 500 MG, QID
     Route: 048
     Dates: start: 20100101
  6. OCELLA [Suspect]
     Indication: CONTRACEPTION
     Dosage: UNK UNK, QD
     Route: 048
     Dates: start: 20080101, end: 20100101
  7. NORINYL [Concomitant]
     Dosage: UNK UNK, QD
     Route: 048
     Dates: start: 20100304
  8. PRILOSEC [Concomitant]
     Dosage: UNK UNK, QD
     Dates: start: 20100301

REACTIONS (5)
  - ABDOMINAL PAIN [None]
  - CHEST PAIN [None]
  - CHOLELITHIASIS [None]
  - CHOLECYSTITIS CHRONIC [None]
  - GASTROINTESTINAL PAIN [None]
